FAERS Safety Report 7301183-6 (Version None)
Quarter: 2010Q4

REPORT INFORMATION
  Report Type: 
  Country: None (occurrence: None)
  Receive Date: 20101229
  Receipt Date: 20100907
  Transmission Date: 20110411
  Serious: No
  Sender: FDA-Public Use
  Company Number: 1000016139

PATIENT
  Age: 78 Year
  Sex: Male

DRUGS (6)
  1. BYSTOLIC [Suspect]
     Indication: HYPERTENSION
     Dosage: (1 IN 1 D), ORAL
     Route: 048
     Dates: start: 20100902
  2. BENICAR [Concomitant]
  3. LANTUS [Concomitant]
  4. HUMALOG [Concomitant]
  5. PLAVIX [Concomitant]
  6. ZOCOR [Concomitant]

REACTIONS (1)
  - BLOOD GLUCOSE DECREASED [None]
